FAERS Safety Report 4544588-9 (Version None)
Quarter: 2005Q1

REPORT INFORMATION
  Report Type: 
  Country: None (occurrence: None)
  Receive Date: 20050103
  Receipt Date: 20050103
  Transmission Date: 20050727
  Serious: Yes (Hospitalization)
  Sender: FDA-Public Use
  Company Number: None

PATIENT
  Sex: Male

DRUGS (6)
  1. GEMCITABINE [Suspect]
     Indication: PANCREATIC CARCINOMA METASTATIC
     Dosage: 1200 Q WEEKLY INTRAVENOUS
     Route: 042
     Dates: start: 20041111, end: 20041228
  2. IRINOTECAN [Suspect]
     Indication: PANCREATIC CARCINOMA METASTATIC
     Dosage: 125 Q WEEKLY INTRAVENOUS
     Route: 042
     Dates: start: 20041111, end: 20041228
  3. ZOFRAN [Concomitant]
  4. DECADRON [Concomitant]
  5. LASIX [Concomitant]
  6. ALDACTONE [Concomitant]

REACTIONS (2)
  - ASTHENIA [None]
  - DYSPNOEA [None]
